FAERS Safety Report 9784969 (Version 1)
Quarter: 2013Q4

REPORT INFORMATION
  Report Type: Spontaneous
  Country: DE (occurrence: DE)
  Receive Date: 20131227
  Receipt Date: 20131227
  Transmission Date: 20140711
  Serious: Yes (Life-Threatening, Hospitalization)
  Sender: FDA-Public Use
  Company Number: DE-BRISTOL-MYERS SQUIBB COMPANY-19924497

PATIENT
  Sex: 0

DRUGS (1)
  1. ELIQUIS [Suspect]

REACTIONS (1)
  - Epilepsy [Unknown]
